FAERS Safety Report 10517569 (Version 3)
Quarter: 2014Q4

REPORT INFORMATION
  Report Type: Report from Study
  Country: CA (occurrence: CA)
  Receive Date: 20141014
  Receipt Date: 20141128
  Transmission Date: 20150528
  Serious: Yes (Other)
  Sender: FDA-Public Use
  Company Number: PHHY2014CA131681

PATIENT
  Age: 21 Year
  Sex: Female

DRUGS (2)
  1. GILENYA [Suspect]
     Active Substance: FINGOLIMOD HYDROCHLORIDE
     Dosage: 0.5 MG, DAILY
     Route: 048
  2. GILENYA [Suspect]
     Active Substance: FINGOLIMOD HYDROCHLORIDE
     Indication: RELAPSING-REMITTING MULTIPLE SCLEROSIS
     Dosage: 0.5 MG, DAILY
     Route: 048
     Dates: start: 20141006, end: 20141111

REACTIONS (7)
  - Nasopharyngitis [Not Recovered/Not Resolved]
  - Electrocardiogram T wave abnormal [Unknown]
  - Myocardial ischaemia [Unknown]
  - Cough [Not Recovered/Not Resolved]
  - Sinus arrhythmia [Unknown]
  - Sinus bradycardia [Unknown]
  - Chest pain [Not Recovered/Not Resolved]

NARRATIVE: CASE EVENT DATE: 20141006
